FAERS Safety Report 13740839 (Version 1)
Quarter: 2017Q3

REPORT INFORMATION
  Report Type: Spontaneous
  Country: FR (occurrence: FR)
  Receive Date: 20170711
  Receipt Date: 20170711
  Transmission Date: 20171127
  Serious: Yes (Hospitalization)
  Sender: FDA-Public Use
  Company Number: FR-PFIZER INC-2017294972

PATIENT
  Age: 58 Year
  Sex: Female
  Weight: 50 kg

DRUGS (6)
  1. COVERAM [Suspect]
     Active Substance: AMLODIPINE\PERINDOPRIL
     Dosage: 12 DF, SINGLE
     Route: 048
     Dates: start: 20160708, end: 20160708
  2. ATORVASTATIN [Concomitant]
     Active Substance: ATORVASTATIN
  3. AMLOR [Suspect]
     Active Substance: AMLODIPINE BESYLATE
     Dosage: 10 DF, SINGLE
     Route: 048
     Dates: start: 20160708, end: 20160708
  4. COVERAM [Suspect]
     Active Substance: AMLODIPINE\PERINDOPRIL
     Dosage: 1 DF, 1X/DAY
     Route: 048
  5. FLUOXETINE HYDROCHLORIDE. [Suspect]
     Active Substance: FLUOXETINE HYDROCHLORIDE
     Dosage: UNK
     Route: 048
  6. FLUOXETINE HYDROCHLORIDE. [Suspect]
     Active Substance: FLUOXETINE HYDROCHLORIDE
     Dosage: UNK, SINGLE
     Route: 048
     Dates: start: 20160708, end: 20160708

REACTIONS (5)
  - Somnolence [Recovered/Resolved]
  - Toxicity to various agents [Recovered/Resolved]
  - Overdose [Unknown]
  - Suicide attempt [Recovered/Resolved]
  - Hypotension [Recovered/Resolved]

NARRATIVE: CASE EVENT DATE: 20160708
